FAERS Safety Report 8617989 (Version 2)
Quarter: 2013Q4

REPORT INFORMATION
  Report Type: Spontaneous
  Country: US (occurrence: US)
  Receive Date: 20120615
  Receipt Date: 20131118
  Transmission Date: 20140711
  Serious: Yes (Other)
  Sender: FDA-Public Use
  Company Number: US-JNJFOC-20120604875

PATIENT
  Sex: Female
  Weight: 72.58 kg

DRUGS (5)
  1. DURAGESIC [Suspect]
     Indication: NERVE INJURY
     Route: 062
     Dates: start: 200603
  2. PERCOCET [Suspect]
     Indication: PAIN
     Route: 048
  3. SYNTHROID [Concomitant]
     Route: 065
  4. VALIUM [Concomitant]
     Indication: MOVEMENT DISORDER
     Route: 048
  5. NORDITROPIN [Concomitant]
     Indication: HYPOPITUITARISM
     Route: 065

REACTIONS (11)
  - Fall [Recovered/Resolved]
  - Memory impairment [Not Recovered/Not Resolved]
  - Concussion [Recovered/Resolved]
  - Dysuria [Recovered/Resolved]
  - Drug administration error [Not Recovered/Not Resolved]
  - Wrong technique in drug usage process [Not Recovered/Not Resolved]
  - Wrong technique in drug usage process [Not Recovered/Not Resolved]
  - Hypothalamo-pituitary disorder [Not Recovered/Not Resolved]
  - Weight decreased [Recovered/Resolved]
  - Drug ineffective [Not Recovered/Not Resolved]
  - Product adhesion issue [Not Recovered/Not Resolved]
